FAERS Safety Report 9011806 (Version 1)
Quarter: 2013Q1

REPORT INFORMATION
  Report Type: Spontaneous
  Country: US (occurrence: US)
  Receive Date: 20130113
  Receipt Date: 20130113
  Transmission Date: 20140127
  Serious: Yes (Other)
  Sender: FDA-Public Use
  Company Number: US-009507513-1301USA004294

PATIENT
  Sex: Female

DRUGS (7)
  1. SINGULAIR [Suspect]
     Dosage: 10 MG, UNK
     Route: 048
  2. OMEPRAZOLE [Suspect]
     Dosage: 20 MG, QD
     Route: 048
  3. AMLODIPINE [Suspect]
     Dosage: 5 MG, UNK
     Route: 048
  4. VENTOLIN (ALBUTEROL) [Suspect]
     Indication: HIATUS HERNIA
     Dosage: 100 UG PRN INHALATION
     Route: 055
  5. SERETIDE [Suspect]
     Dosage: 2 DF, BID INHALATION
     Route: 055
  6. TRIAMCINOLONE [Concomitant]
     Indication: ASTHMA
  7. DIHYDROCODEINE BITARTRATE [Concomitant]
     Indication: BLOOD PRESSURE

REACTIONS (5)
  - Increased upper airway secretion [Unknown]
  - Dyspnoea [Unknown]
  - Cough [Unknown]
  - Condition aggravated [Unknown]
  - Asthma [Unknown]
